FAERS Safety Report 4345210-7 (Version None)
Quarter: 2004Q2

REPORT INFORMATION
  Report Type: 
  Country: None (occurrence: None)
  Receive Date: 20040421
  Receipt Date: 20040421
  Transmission Date: 20050107
  Serious: Yes (Other)
  Sender: FDA-Public Use
  Company Number: None

PATIENT
  Age: 42 Year
  Sex: Female
  Weight: 569.7179 kg

DRUGS (1)
  1. DURAGESIC [Suspect]
     Indication: PAIN
     Dosage: 1 THREE DAYS
     Dates: start: 20040327, end: 20040420

REACTIONS (3)
  - CHILLS [None]
  - HYPERHIDROSIS [None]
  - PAIN [None]
